FAERS Safety Report 14326002 (Version 1)
Quarter: 2017Q4

REPORT INFORMATION
  Report Type: Report from Study
  Country: NL (occurrence: NL)
  Receive Date: 20171226
  Receipt Date: 20171226
  Transmission Date: 20180321
  Serious: Yes (Hospitalization)
  Sender: FDA-Public Use
  Company Number: NL-IPSEN BIOPHARMACEUTICALS, INC.-2017-14787

PATIENT
  Age: 45 Year
  Sex: Female

DRUGS (1)
  1. SOMATULINE AUTOSOLUTION 120MG [Suspect]
     Active Substance: LANREOTIDE ACETATE
     Indication: HEPATIC CANCER
     Dosage: 120 MG
     Route: 058
     Dates: start: 20160514, end: 20171026

REACTIONS (1)
  - Liver transplant [Recovering/Resolving]

NARRATIVE: CASE EVENT DATE: 20171031
